FAERS Safety Report 23099006 (Version 1)
Quarter: 2023Q4

REPORT INFORMATION
  Report Type: Spontaneous
  Country: DE (occurrence: DE)
  Receive Date: 20231024
  Receipt Date: 20231024
  Transmission Date: 20240109
  Serious: Yes (Hospitalization)
  Sender: FDA-Public Use
  Company Number: DE-DCGMA-23201919

PATIENT
  Age: 13 Year
  Sex: Female
  Weight: 60 kg

DRUGS (6)
  1. RITUXIMAB [Suspect]
     Active Substance: RITUXIMAB
     Indication: Microscopic polyangiitis
     Route: 065
     Dates: start: 20230714, end: 20230728
  2. PREDNISOLONE [Concomitant]
     Active Substance: PREDNISOLONE
     Dosage: REDUKTIONSSCHEMA 40-20-20-0 MG
     Dates: start: 20230620
  3. PANTOPRAZOLE [Concomitant]
     Active Substance: PANTOPRAZOLE
  4. L-THYROXIN-NATRIUM [Concomitant]
  5. CHOLECALCIFEROL [Concomitant]
     Active Substance: CHOLECALCIFEROL
  6. FUROSEMID HEUMANN [Concomitant]

REACTIONS (4)
  - Eye movement disorder [Recovered/Resolved]
  - Hot flush [Recovered/Resolved]
  - Dizziness [Recovered/Resolved]
  - Unresponsive to stimuli [Recovered/Resolved]

NARRATIVE: CASE EVENT DATE: 20230728
